FAERS Safety Report 14110068 (Version 1)
Quarter: 2017Q4

REPORT INFORMATION
  Report Type: Report from Study
  Country: None (occurrence: CO)
  Receive Date: 20171020
  Receipt Date: 20171020
  Transmission Date: 20180321
  Serious: Yes (Other)
  Sender: FDA-Public Use
  Company Number: CO-ABBVIE-17K-036-2137054-00

PATIENT
  Age: 63 Year
  Sex: Female
  Weight: 70 kg

DRUGS (1)
  1. HUMIRA [Suspect]
     Active Substance: ADALIMUMAB
     Indication: CROHN^S DISEASE
     Route: 058
     Dates: start: 20150520

REACTIONS (4)
  - Lip erythema [Recovering/Resolving]
  - Erythema [Recovering/Resolving]
  - Sacroiliitis [Recovering/Resolving]
  - Genital herpes [Recovering/Resolving]

NARRATIVE: CASE EVENT DATE: 2016
